FAERS Safety Report 17589619 (Version 1)
Quarter: 2020Q1

REPORT INFORMATION
  Report Type: Spontaneous
  Country: US (occurrence: US)
  Receive Date: 20200327
  Receipt Date: 20200327
  Transmission Date: 20200409
  Serious: No
  Sender: FDA-Public Use
  Company Number: US-ALLERGAN-1924953US

PATIENT
  Age: 38 Year
  Sex: Female

DRUGS (2)
  1. MASCARA [Concomitant]
     Dosage: TWICE A WEEK
  2. LATISSE [Suspect]
     Active Substance: BIMATOPROST
     Indication: GROWTH OF EYELASHES
     Dosage: 2 GTT, QHS
     Route: 061

REACTIONS (4)
  - Madarosis [Unknown]
  - Product quality issue [Unknown]
  - Drug ineffective [Unknown]
  - Eyelash changes [Unknown]

NARRATIVE: CASE EVENT DATE: 2019
